FAERS Safety Report 21735299 (Version 1)
Quarter: 2022Q4

REPORT INFORMATION
  Report Type: Spontaneous
  Country: US (occurrence: US)
  Receive Date: 20221215
  Receipt Date: 20221215
  Transmission Date: 20230112
  Serious: Yes (Death, Other)
  Sender: FDA-Public Use
  Company Number: US-PFIZER INC-202200159802

PATIENT
  Age: 10 Year
  Sex: Male

DRUGS (3)
  1. MEKTOVI [Suspect]
     Active Substance: BINIMETINIB
     Indication: Brain neoplasm malignant
     Dosage: 75 MG (2 TABS (30 MG) EVERY MORNING AND TAKE 3 TABS (45 MG) EVERY EVENING)
     Route: 048
  2. MEKTOVI [Suspect]
     Active Substance: BINIMETINIB
     Indication: Neurofibromatosis
     Dosage: 15 MG
  3. MEKTOVI [Suspect]
     Active Substance: BINIMETINIB
     Dosage: 30 MG

REACTIONS (3)
  - Death [Fatal]
  - Off label use [Unknown]
  - Off label use [Unknown]

NARRATIVE: CASE EVENT DATE: 20221207
